FAERS Safety Report 8136602-9 (Version None)
Quarter: 2012Q1

REPORT INFORMATION
  Report Type: 
  Country: None (occurrence: None)
  Receive Date: 20120214
  Receipt Date: 20120207
  Transmission Date: 20120608
  Serious: Yes (Hospitalization, Disabling, Other)
  Sender: FDA-Public Use
  Company Number: US-ROCHE-541242

PATIENT
  Sex: Female
  Weight: 43.5 kg

DRUGS (4)
  1. YASMIN [Concomitant]
     Indication: CONTRACEPTION
  2. TOPAMAX [Concomitant]
     Indication: EPILEPSY
  3. SOTRET [Suspect]
     Indication: ACNE
     Dosage: 40 MG ORALLY DAILY MONDAY THRU FRIDAY AND 40 MG TWICE DAILY SATURDAY AND SUNDAY.
     Route: 048
     Dates: start: 20041024, end: 20050224
  4. ACCUTANE [Suspect]
     Indication: ACNE
     Route: 048
     Dates: start: 20040921, end: 20041021

REACTIONS (8)
  - OBSESSIVE-COMPULSIVE DISORDER [None]
  - INFLAMMATORY BOWEL DISEASE [None]
  - DEPRESSION [None]
  - HAEMORRHOIDS [None]
  - CROHN'S DISEASE [None]
  - COLITIS [None]
  - GASTROINTESTINAL DISORDER [None]
  - COLITIS ULCERATIVE [None]
